FAERS Safety Report 12413640 (Version 1)
Quarter: 2016Q2

REPORT INFORMATION
  Report Type: Report from Study
  Country: US (occurrence: US)
  Receive Date: 20160527
  Receipt Date: 20160527
  Transmission Date: 20160815
  Serious: Yes (Hospitalization)
  Sender: FDA-Public Use
  Company Number: US-ACTELION-A-NJ2014-105196

PATIENT
  Age: 57 Year
  Sex: Female

DRUGS (1)
  1. MACITENTAN [Suspect]
     Active Substance: MACITENTAN
     Indication: PULMONARY ARTERIAL HYPERTENSION
     Dosage: 10 MG, QD
     Route: 048
     Dates: start: 20140108

REACTIONS (8)
  - Cardiac failure congestive [Unknown]
  - Fatigue [Unknown]
  - Palpitations [Unknown]
  - Abdominal distension [Unknown]
  - Atrial fibrillation [Unknown]
  - Fluid retention [Recovered/Resolved]
  - Peripheral swelling [Unknown]
  - Weight increased [Unknown]
